FAERS Safety Report 4817667-6 (Version None)
Quarter: 2005Q4

REPORT INFORMATION
  Report Type: 
  Country: None (occurrence: None)
  Receive Date: 20051101
  Receipt Date: 20051101
  Transmission Date: 20060501
  Serious: Yes (Hospitalization)
  Sender: FDA-Public Use
  Company Number: None

PATIENT
  Age: 75 Year
  Sex: Male
  Weight: 91 kg

DRUGS (12)
  1. CEFAZOLIN [Suspect]
     Indication: ANTIBIOTIC PROPHYLAXIS
     Dosage: 1 GM Q8HRS IV X 3
     Route: 042
     Dates: start: 20050822, end: 20050823
  2. CEFTRIAXONE [Suspect]
     Indication: PNEUMONIA
     Dosage: 1 GM Q24HRS IV X 3
     Route: 042
     Dates: start: 20050824, end: 20050826
  3. AZITHROMYCIN [Concomitant]
  4. METRONIDAZOLE [Concomitant]
  5. HYDROCODONE 7.5/ACETAMINOPHEN [Concomitant]
  6. SIMVASTATIN [Concomitant]
  7. LISINOPRIL [Concomitant]
  8. CLOTRIMAZOLE [Concomitant]
  9. ACCU-CHEK COMFORT (GLUCOSE) TEST [Concomitant]
  10. GLYBURIDE [Concomitant]
  11. ROSIGLITAZONE MALEATE [Concomitant]
  12. LANCET, TECHLITE [Concomitant]

REACTIONS (1)
  - DIARRHOEA [None]
